FAERS Safety Report 7731019-0 (Version None)
Quarter: 2011Q3

REPORT INFORMATION
  Report Type: 
  Country: None (occurrence: None)
  Receive Date: 20110906
  Receipt Date: 20110902
  Transmission Date: 20111222
  Serious: Yes (Hospitalization, Other)
  Sender: FDA-Public Use
  Company Number: JP-PFIZER INC-2011206168

PATIENT

DRUGS (2)
  1. LYRICA [Suspect]
     Dosage: 25 MG, DAILY
     Route: 048
  2. DIAZEPAM [Suspect]
     Dosage: UNK

REACTIONS (1)
  - LOSS OF CONSCIOUSNESS [None]
